FAERS Safety Report 4618410-6 (Version None)
Quarter: 2005Q2

REPORT INFORMATION
  Report Type: 
  Country: None (occurrence: None)
  Receive Date: 20050311
  Receipt Date: 20041122
  Transmission Date: 20051028
  Serious: No
  Sender: FDA-Public Use
  Company Number: 2004-BP-10396BP

PATIENT
  Sex: Female

DRUGS (6)
  1. SPIRIVA [Suspect]
     Indication: ASTHMA
     Dosage: 18 MCG (18 MCG), IH
     Route: 055
  2. SPIRIVA [Suspect]
  3. LASIX [Concomitant]
  4. COZAAR [Concomitant]
  5. NORVASC [Concomitant]
  6. FLOVENT [Concomitant]

REACTIONS (1)
  - HYPERTENSION [None]
